FAERS Safety Report 13297410 (Version 2)
Quarter: 2017Q2

REPORT INFORMATION
  Report Type: Spontaneous
  Country: JP (occurrence: JP)
  Receive Date: 20170306
  Receipt Date: 20170410
  Transmission Date: 20170830
  Serious: Yes (Other)
  Sender: FDA-Public Use
  Company Number: JP-GLAXOSMITHKLINE-JP2017GSK030591

PATIENT
  Age: 83 Year
  Sex: Female

DRUGS (4)
  1. ZALTOPROFEN [Concomitant]
     Active Substance: ZALTOPROFEN
     Dosage: UNK
     Dates: start: 20161217, end: 20170120
  2. AFLOQUALONE [Concomitant]
     Active Substance: AFLOQUALONE
  3. CALONAL [Concomitant]
     Active Substance: ACETAMINOPHEN
     Dosage: UNK
     Dates: start: 20170120, end: 20170203
  4. VOLTAREN [Suspect]
     Active Substance: DICLOFENAC SODIUM
     Indication: PRODUCT USED FOR UNKNOWN INDICATION
     Route: 048

REACTIONS (4)
  - Musculoskeletal pain [Unknown]
  - Oedema peripheral [Unknown]
  - Abasia [Unknown]
  - Polymyositis [Unknown]

NARRATIVE: CASE EVENT DATE: 201612
